FAERS Safety Report 5179997-0 (Version None)
Quarter: 2006Q4

REPORT INFORMATION
  Report Type: 
  Country: None (occurrence: None)
  Receive Date: 20061211
  Receipt Date: 20061129
  Transmission Date: 20070319
  Serious: Yes (Hospitalization)
  Sender: FDA-Public Use
  Company Number: E2020-00741-SPO-DE

PATIENT
  Age: 87 Year
  Sex: Male

DRUGS (1)
  1. ARICEPT [Suspect]
     Indication: DEMENTIA
     Dosage: 10 MG, 1 IN 1 D; ORAL
     Route: 048
     Dates: start: 20040101, end: 20041201

REACTIONS (2)
  - ADAMS-STOKES SYNDROME [None]
  - SINUS BRADYCARDIA [None]
